FAERS Safety Report 20044018 (Version 1)
Quarter: 2021Q4

REPORT INFORMATION
  Report Type: Spontaneous
  Country: US (occurrence: US)
  Receive Date: 20211108
  Receipt Date: 20211108
  Transmission Date: 20220303
  Serious: Yes (Other)
  Sender: FDA-Public Use
  Company Number: US-BAYER-2021A239297

PATIENT
  Sex: Female

DRUGS (2)
  1. CIPRO [Suspect]
     Active Substance: CIPROFLOXACIN HYDROCHLORIDE
     Dosage: UNK
     Route: 048
     Dates: start: 2018
  2. XELJANZ [Concomitant]
     Active Substance: TOFACITINIB CITRATE

REACTIONS (3)
  - Tremor [None]
  - Malaise [None]
  - Alopecia [None]

NARRATIVE: CASE EVENT DATE: 20180101
